FAERS Safety Report 16121011 (Version 4)
Quarter: 2019Q2

REPORT INFORMATION
  Report Type: Spontaneous
  Country: CZ (occurrence: CZ)
  Receive Date: 20190327
  Receipt Date: 20190404
  Transmission Date: 20190711
  Serious: No
  Sender: FDA-Public Use
  Company Number: CZ-ASTRAZENECA-2019SE47286

PATIENT
  Sex: Female

DRUGS (3)
  1. BENZODIAZEPINE [Concomitant]
     Active Substance: BENZODIAZEPINE
  2. QUETIAPINE. [Suspect]
     Active Substance: QUETIAPINE
     Indication: PSYCHOTIC DISORDER
     Dosage: UNK
     Route: 048
  3. CISORDINOL ACUTARD [Concomitant]
     Active Substance: ZUCLOPENTHIXOL ACETATE
     Route: 065

REACTIONS (1)
  - Off label use [Unknown]
